FAERS Safety Report 6267175-3 (Version None)
Quarter: 2009Q3

REPORT INFORMATION
  Report Type: 
  Country: None (occurrence: None)
  Receive Date: 20090714
  Receipt Date: 20090708
  Transmission Date: 20100115
  Serious: Yes (Other)
  Sender: FDA-Public Use
  Company Number: BR-JNJFOC-20090703141

PATIENT
  Age: 9 Year
  Sex: Female

DRUGS (1)
  1. TOPAMAX [Suspect]
     Indication: AUTOSOMAL CHROMOSOME ANOMALY
     Route: 065

REACTIONS (1)
  - ILL-DEFINED DISORDER [None]
